FAERS Safety Report 8294309-1 (Version None)
Quarter: 2012Q2

REPORT INFORMATION
  Report Type: 
  Country: None (occurrence: None)
  Receive Date: 20120416
  Receipt Date: 20120402
  Transmission Date: 20120825
  Serious: Yes (Hospitalization, Other)
  Sender: FDA-Public Use
  Company Number: HA11-320-AE

PATIENT
  Age: 44 Year
  Sex: Male
  Weight: 118.3888 kg

DRUGS (3)
  1. METFORMIN HCL [Suspect]
     Indication: DIABETES MELLITUS
     Dosage: 1 TABLET, BID, ORAL
     Route: 048
     Dates: start: 20111125, end: 20111204
  2. DIOVAN [Concomitant]
  3. SIMVASTATIN [Concomitant]

REACTIONS (20)
  - HEART RATE INCREASED [None]
  - BLOOD GLUCOSE INCREASED [None]
  - GLYCOSYLATED HAEMOGLOBIN INCREASED [None]
  - HEPATIC PAIN [None]
  - COUGH [None]
  - CHEST DISCOMFORT [None]
  - BLOOD CREATININE INCREASED [None]
  - NAUSEA [None]
  - BURNING SENSATION [None]
  - HYPERHIDROSIS [None]
  - HYPOAESTHESIA [None]
  - HYPERLIPIDAEMIA [None]
  - LUNG INFILTRATION [None]
  - INFLAMMATION [None]
  - PARAESTHESIA [None]
  - MUSCULOSKELETAL PAIN [None]
  - HYPERTENSION [None]
  - GASTROOESOPHAGEAL REFLUX DISEASE [None]
  - DYSAESTHESIA [None]
  - MUSCLE SPASMS [None]
